FAERS Safety Report 23310050 (Version 1)
Quarter: 2023Q4

REPORT INFORMATION
  Report Type: Spontaneous
  Country: US (occurrence: None)
  Receive Date: 20231218
  Receipt Date: 20231218
  Transmission Date: 20240110
  Serious: No
  Sender: FDA-Public Use
  Company Number: None

PATIENT
  Age: 62 Year
  Sex: Female
  Weight: 75.6 kg

DRUGS (1)
  1. MONISTAT 1 COMBINATION PACK [Suspect]
     Active Substance: MICONAZOLE NITRATE
     Indication: Fungal infection
     Dosage: OTHER QUANTITY : 1 SUPPOSITORY(IES);?FREQUENCY : ONCE;?
     Route: 067
     Dates: start: 20231217, end: 20231217

REACTIONS (3)
  - Application site pain [None]
  - Vulvovaginal burning sensation [None]
  - Vaginal infection [None]

NARRATIVE: CASE EVENT DATE: 20231217
